FAERS Safety Report 7345778-2 (Version None)
Quarter: 2011Q1

REPORT INFORMATION
  Report Type: 
  Country: None (occurrence: None)
  Receive Date: 20110311
  Receipt Date: 20110304
  Transmission Date: 20110831
  Serious: Yes (Hospitalization)
  Sender: FDA-Public Use
  Company Number: CA-BIOGENIDEC-2011BI006552

PATIENT
  Age: 41 Year
  Sex: Female

DRUGS (7)
  1. AMITRIPTYLINE [Concomitant]
  2. ALEVE [Concomitant]
  3. VITAMIN D [Concomitant]
  4. MACROBID [Concomitant]
  5. TYSABRI [Suspect]
     Indication: RELAPSING-REMITTING MULTIPLE SCLEROSIS
     Route: 042
     Dates: start: 20071018
  6. FLOMAX [Concomitant]
  7. GABAPENTIN [Concomitant]

REACTIONS (1)
  - UTERINE LEIOMYOMA [None]
